FAERS Safety Report 11897777 (Version 1)
Quarter: 2016Q1

REPORT INFORMATION
  Report Type: Spontaneous
  Country: US (occurrence: None)
  Receive Date: 20160106
  Receipt Date: 20160106
  Transmission Date: 20160526
  Serious: Yes (Hospitalization)
  Sender: FDA-Public Use
  Company Number: None

PATIENT
  Age: 63 Year
  Sex: Male
  Weight: 145.8 kg

DRUGS (2)
  1. HEPARIN [Suspect]
     Active Substance: HEPARIN SODIUM
     Indication: PROPHYLAXIS
     Dosage: 5000 UNITS
     Route: 058
     Dates: start: 20151106, end: 20151125
  2. HEPARIN [Suspect]
     Active Substance: HEPARIN SODIUM
     Indication: DEEP VEIN THROMBOSIS
     Dosage: 5000 UNITS
     Route: 058
     Dates: start: 20151106, end: 20151125

REACTIONS (2)
  - Heparin-induced thrombocytopenia test positive [None]
  - Sepsis [None]

NARRATIVE: CASE EVENT DATE: 20151124
